FAERS Safety Report 7123875-4 (Version None)
Quarter: 2010Q4

REPORT INFORMATION
  Report Type: 
  Country: None (occurrence: None)
  Receive Date: 20101125
  Receipt Date: 20101112
  Transmission Date: 20110411
  Serious: Yes (Hospitalization, Other)
  Sender: FDA-Public Use
  Company Number: US-ELI_LILLY_AND_COMPANY-US201007001024

PATIENT
  Sex: Female

DRUGS (15)
  1. FORTEO [Suspect]
     Indication: OSTEOPOROSIS
     Dosage: 20 UG, DAILY (1/D)
     Route: 058
     Dates: start: 20100325
  2. FORTEO [Suspect]
     Dosage: 20 UG, DAILY (1/D)
     Dates: start: 20100325
  3. IRON [Concomitant]
     Indication: MINERAL SUPPLEMENTATION
  4. POTASSIUM CHLORIDE [Concomitant]
     Indication: MINERAL SUPPLEMENTATION
  5. MAGNESIUM [Concomitant]
     Indication: MINERAL SUPPLEMENTATION
  6. LIPITOR [Concomitant]
  7. SIMVASTATIN [Concomitant]
     Indication: BLOOD CHOLESTEROL
  8. ASPIRIN [Concomitant]
  9. CALCIUM [Concomitant]
  10. CALCIUM WITH VITAMIN D [Concomitant]
  11. VITAMIN D [Concomitant]
  12. CELEBREX [Concomitant]
     Indication: PAIN
  13. PRILOSEC [Concomitant]
  14. VITAMIN E [Concomitant]
  15. GLUCOSAMINE W/CHONDROITIN [Concomitant]

REACTIONS (13)
  - ARTHRALGIA [None]
  - BACK PAIN [None]
  - BLOOD IRON DECREASED [None]
  - BLOOD MAGNESIUM DECREASED [None]
  - BLOOD POTASSIUM DECREASED [None]
  - BLOOD PRESSURE DECREASED [None]
  - CARDIAC ENZYMES INCREASED [None]
  - DEHYDRATION [None]
  - INSOMNIA [None]
  - LOSS OF CONSCIOUSNESS [None]
  - PALPITATIONS [None]
  - SYNCOPE [None]
  - UNRESPONSIVE TO STIMULI [None]
